FAERS Safety Report 7783530-4 (Version None)
Quarter: 2011Q3

REPORT INFORMATION
  Report Type: 
  Country: None (occurrence: None)
  Receive Date: 20110928
  Receipt Date: 20110914
  Transmission Date: 20111222
  Serious: Yes (Hospitalization)
  Sender: FDA-Public Use
  Company Number: DE-AMGEN-US350521

PATIENT
  Age: 60 Year
  Sex: Female
  Weight: 96 kg

DRUGS (3)
  1. ETANERCEPT [Suspect]
     Indication: PSORIATIC ARTHROPATHY
     Dosage: 25 MG, 2 TIMES/WK
     Route: 058
     Dates: start: 20090425, end: 20090501
  2. PREDNISOLONE [Suspect]
     Dosage: 5 MG, QD
     Route: 048
     Dates: start: 20090101
  3. CELECOXIB [Concomitant]
     Dosage: 200 MG, QD
     Route: 048
     Dates: start: 20071201

REACTIONS (2)
  - CHOLELITHIASIS [None]
  - ABDOMINAL WALL DISORDER [None]
